FAERS Safety Report 15035016 (Version 3)
Quarter: 2018Q4

REPORT INFORMATION
  Report Type: Spontaneous
  Country: US (occurrence: US)
  Receive Date: 20180620
  Receipt Date: 20181114
  Transmission Date: 20190204
  Serious: No
  Sender: FDA-Public Use
  Company Number: US-PFIZER INC-2018245271

PATIENT
  Age: 66 Year
  Sex: Male
  Weight: 111 kg

DRUGS (1)
  1. TIKOSYN [Suspect]
     Active Substance: DOFETILIDE
     Indication: ATRIAL FIBRILLATION
     Dosage: 250 UG, 2X/DAY (250MCG CAPSULE BY MOUTH TWICE DAILY EVERY 12 HOURS)
     Route: 048
     Dates: start: 2017, end: 20180605

REACTIONS (1)
  - Drug ineffective [Unknown]
